FAERS Safety Report 12443423 (Version 3)
Quarter: 2016Q3

REPORT INFORMATION
  Report Type: Spontaneous
  Country: RU (occurrence: RU)
  Receive Date: 20160607
  Receipt Date: 20160815
  Transmission Date: 20161109
  Serious: Yes (Hospitalization, Other)
  Sender: FDA-Public Use
  Company Number: RU-JNJFOC-20160603705

PATIENT
  Age: 43 Year
  Sex: Female

DRUGS (3)
  1. XARELTO [Suspect]
     Active Substance: RIVAROXABAN
     Indication: EMBOLISM
     Route: 048
     Dates: start: 20160506
  2. QLAIRA [Suspect]
     Active Substance: DIENOGEST\ESTRADIOL VALERATE
     Indication: GENITAL HAEMORRHAGE
     Route: 048
     Dates: start: 2014, end: 201605
  3. QLAIRA [Suspect]
     Active Substance: DIENOGEST\ESTRADIOL VALERATE
     Indication: CONTRACEPTION
     Route: 048
     Dates: start: 2014, end: 201605

REACTIONS (10)
  - Aortic disorder [Unknown]
  - Bullous lung disease [Unknown]
  - Pulmonary embolism [Unknown]
  - Vena cava thrombosis [Unknown]
  - Chronic gastritis [Unknown]
  - Labelled drug-disease interaction medication error [Unknown]
  - Bronchitis chronic [Unknown]
  - Pulmonary hypertension [Unknown]
  - Uterine haemorrhage [Not Recovered/Not Resolved]
  - Deep vein thrombosis [Unknown]

NARRATIVE: CASE EVENT DATE: 201602
